FAERS Safety Report 14741834 (Version 1)
Quarter: 2018Q2

REPORT INFORMATION
  Report Type: Spontaneous
  Country: US (occurrence: US)
  Receive Date: 20180410
  Receipt Date: 20180410
  Transmission Date: 20180711
  Serious: No
  Sender: FDA-Public Use
  Company Number: US-BEH-2018089413

PATIENT
  Sex: Female
  Weight: 56.24 kg

DRUGS (11)
  1. HAEGARDA [Suspect]
     Active Substance: HUMAN C1-ESTERASE INHIBITOR
     Indication: PROPHYLAXIS
  2. METOPROLOL. [Concomitant]
     Active Substance: METOPROLOL
     Route: 065
  3. HAEGARDA [Suspect]
     Active Substance: HUMAN C1-ESTERASE INHIBITOR
     Indication: HEREDITARY ANGIOEDEMA
  4. EPINEPHRINE. [Concomitant]
     Active Substance: EPINEPHRINE
     Route: 065
  5. CINRYZE [Concomitant]
     Active Substance: HUMAN C1-ESTERASE INHIBITOR
     Route: 065
  6. MICARDIS [Concomitant]
     Active Substance: TELMISARTAN
     Route: 065
  7. HAEGARDA [Suspect]
     Active Substance: HUMAN C1-ESTERASE INHIBITOR
     Indication: GASTROOESOPHAGEAL REFLUX DISEASE
  8. HAEGARDA [Suspect]
     Active Substance: HUMAN C1-ESTERASE INHIBITOR
     Indication: OSTEOPOROSIS
     Dosage: 4000 IU, BIW
     Route: 058
     Dates: start: 20170918
  9. HAEGARDA [Suspect]
     Active Substance: HUMAN C1-ESTERASE INHIBITOR
     Indication: ILL-DEFINED DISORDER
  10. PRAVASTATIN. [Concomitant]
     Active Substance: PRAVASTATIN
     Route: 065
  11. VERAPAMIL [Concomitant]
     Active Substance: VERAPAMIL HYDROCHLORIDE
     Route: 065

REACTIONS (1)
  - Vitamin E decreased [Unknown]
